FAERS Safety Report 24963898 (Version 3)
Quarter: 2025Q2

REPORT INFORMATION
  Report Type: Spontaneous
  Country: US (occurrence: US)
  Receive Date: 20250213
  Receipt Date: 20250404
  Transmission Date: 20250717
  Serious: Yes (Other)
  Sender: NOVARTIS
  Company Number: US-002147023-NVSC2025US025166

PATIENT
  Age: 72 Year
  Sex: Male
  Weight: 96.5 kg

DRUGS (1)
  1. PLUVICTO [Suspect]
     Active Substance: LUTETIUM LU-177 VIPIVOTIDE TETRAXETAN
     Indication: Hormone-refractory prostate cancer
     Route: 042
     Dates: start: 20241105, end: 20250305

REACTIONS (2)
  - General physical health deterioration [Not Recovered/Not Resolved]
  - Pancytopenia [Unknown]

NARRATIVE: CASE EVENT DATE: 20250225
